FAERS Safety Report 16480150 (Version 2)
Quarter: 2019Q3

REPORT INFORMATION
  Report Type: Spontaneous
  Country: US (occurrence: US)
  Receive Date: 20190626
  Receipt Date: 20190722
  Transmission Date: 20191004
  Serious: Yes (Hospitalization)
  Sender: FDA-Public Use
  Company Number: US-ALLERGAN-1919424US

PATIENT
  Sex: Male

DRUGS (6)
  1. NORDITROPIN [Concomitant]
     Active Substance: SOMATROPIN
     Route: 065
  2. TRIPTORELIN PAMOATE - BP [Suspect]
     Active Substance: TRIPTORELIN PAMOATE
     Indication: BODY HEIGHT BELOW NORMAL
     Dosage: 22.5 MG, IN 24 WEEKS
     Route: 030
     Dates: start: 20190426, end: 20190426
  3. MULTIVITAMIN [Concomitant]
     Active Substance: VITAMINS
     Route: 065
  4. PREVACID [Concomitant]
     Active Substance: LANSOPRAZOLE
     Route: 065
  5. SYMBICORT [Concomitant]
     Active Substance: BUDESONIDE\FORMOTEROL FUMARATE DIHYDRATE
     Route: 065
  6. CALCIUM CARBONATE PCH [Concomitant]
     Route: 065

REACTIONS (2)
  - Off label use [Unknown]
  - Respiratory disorder [Recovered/Resolved]

NARRATIVE: CASE EVENT DATE: 2019
